FAERS Safety Report 7119931-7 (Version None)
Quarter: 2010Q4

REPORT INFORMATION
  Report Type: 
  Country: None (occurrence: None)
  Receive Date: 20101123
  Receipt Date: 20101026
  Transmission Date: 20110411
  Serious: No
  Sender: FDA-Public Use
  Company Number: US-BRISTOL-MYERS SQUIBB COMPANY-15352222

PATIENT
  Sex: Male

DRUGS (2)
  1. SAXAGLIPTIN [Suspect]
     Indication: TYPE 2 DIABETES MELLITUS
     Dates: start: 20100101
  2. LASIX [Concomitant]

REACTIONS (4)
  - FATIGUE [None]
  - HYPOAESTHESIA [None]
  - OEDEMA PERIPHERAL [None]
  - WEIGHT INCREASED [None]
